FAERS Safety Report 15927881 (Version 3)
Quarter: 2019Q1

REPORT INFORMATION
  Report Type: Report from Study
  Country: KR (occurrence: KR)
  Receive Date: 20190206
  Receipt Date: 20190308
  Transmission Date: 20190417
  Serious: Yes (Hospitalization)
  Sender: FDA-Public Use
  Company Number: KR-JNJFOC-20190134978

PATIENT
  Age: 78 Year
  Sex: Female
  Weight: 55.8 kg

DRUGS (23)
  1. SIMPONI [Suspect]
     Active Substance: GOLIMUMAB
     Indication: COLITIS ULCERATIVE
     Route: 058
     Dates: start: 20181211, end: 20181211
  2. SIMPONI [Suspect]
     Active Substance: GOLIMUMAB
     Indication: COLITIS ULCERATIVE
     Route: 058
     Dates: start: 20190122
  3. MIDAZOLAM [Concomitant]
     Active Substance: MIDAZOLAM HYDROCHLORIDE
     Indication: ADVERSE EVENT
     Route: 065
     Dates: start: 20180920
  4. LACIDOFIL [Concomitant]
     Active Substance: LACTOBACILLUS ACIDOPHILUS\LACTOBACILLUS RHAMNOSUS
     Indication: UNEVALUABLE EVENT
     Route: 065
     Dates: start: 20130607
  5. PLETAAL [Concomitant]
     Active Substance: CILOSTAZOL
     Indication: ADVERSE EVENT
     Route: 065
     Dates: start: 20181005
  6. FUSIDATE SODIUM [Concomitant]
     Active Substance: FUSIDATE SODIUM
     Indication: UNEVALUABLE EVENT
     Route: 065
     Dates: start: 20180806
  7. SIMPONI [Suspect]
     Active Substance: GOLIMUMAB
     Indication: COLITIS ULCERATIVE
     Route: 058
     Dates: start: 20181112, end: 20181112
  8. AMODIPIN [Concomitant]
     Indication: UNEVALUABLE EVENT
     Route: 065
     Dates: start: 20180726
  9. SIMPONI [Suspect]
     Active Substance: GOLIMUMAB
     Indication: COLITIS ULCERATIVE
     Route: 058
     Dates: start: 20180905, end: 20180905
  10. TRAZODONE HYDROCHLORIDE. [Concomitant]
     Active Substance: TRAZODONE HYDROCHLORIDE
     Indication: UNEVALUABLE EVENT
     Route: 065
     Dates: start: 20180809
  11. ALPRAM [Concomitant]
     Active Substance: ALPRAZOLAM
     Indication: UNEVALUABLE EVENT
     Route: 065
     Dates: start: 20180809
  12. CLEXANE [Concomitant]
     Active Substance: ENOXAPARIN SODIUM
     Indication: ADVERSE EVENT
     Route: 065
     Dates: start: 20180922
  13. HYROSON [Concomitant]
     Indication: UNEVALUABLE EVENT
     Route: 065
     Dates: start: 20180927
  14. MEROPENEM. [Concomitant]
     Active Substance: MEROPENEM
     Indication: ADVERSE EVENT
     Route: 065
     Dates: start: 20180920
  15. ARONAMIN C PLUS [Concomitant]
     Indication: UNEVALUABLE EVENT
     Route: 065
     Dates: start: 20130608
  16. LIPITOR [Concomitant]
     Active Substance: ATORVASTATIN CALCIUM
     Indication: UNEVALUABLE EVENT
     Route: 065
     Dates: start: 20130607
  17. MAXIPIME [Concomitant]
     Active Substance: CEFEPIME HYDROCHLORIDE
     Indication: ADVERSE EVENT
     Route: 065
     Dates: start: 20181228
  18. ROCNIUM [Concomitant]
     Indication: ADVERSE EVENT
     Route: 065
     Dates: start: 20180921
  19. CORTISOLU [Concomitant]
     Active Substance: HYDROCORTISONE SODIUM SUCCINATE
     Indication: UNEVALUABLE EVENT
     Route: 065
     Dates: start: 20180922
  20. MEGACE F [Concomitant]
     Indication: UNEVALUABLE EVENT
     Route: 065
     Dates: start: 20180809
  21. NADOXOL [Concomitant]
     Indication: ADVERSE EVENT
     Route: 065
     Dates: start: 20180921
  22. SIMPONI [Suspect]
     Active Substance: GOLIMUMAB
     Indication: COLITIS ULCERATIVE
     Route: 058
     Dates: start: 20180822, end: 20180822
  23. MUCOSTA [Concomitant]
     Active Substance: REBAMIPIDE
     Indication: UNEVALUABLE EVENT
     Route: 065
     Dates: start: 20130715

REACTIONS (1)
  - Pyelonephritis acute [Not Recovered/Not Resolved]

NARRATIVE: CASE EVENT DATE: 20181211
